FAERS Safety Report 4511337-X (Version None)
Quarter: 2004Q4

REPORT INFORMATION
  Report Type: 
  Country: None (occurrence: None)
  Receive Date: 20041123
  Receipt Date: 20041123
  Transmission Date: 20050328
  Serious: Yes (Hospitalization, Other)
  Sender: FDA-Public Use
  Company Number: None

PATIENT
  Age: 44 Year
  Sex: Female

DRUGS (6)
  1. CORRECTOL [Suspect]
     Indication: CONSTIPATION
     Dosage: ORAL
     Route: 048
  2. FEEN-A-MINT [Suspect]
     Indication: CONSTIPATION
  3. EX-LAX [Concomitant]
  4. ALPRAZOLAM [Concomitant]
  5. ENALAPRIL [Concomitant]
  6. NADOLOL [Concomitant]

REACTIONS (8)
  - ABDOMINAL PAIN [None]
  - COLD SWEAT [None]
  - COLON CANCER METASTATIC [None]
  - CONSTIPATION [None]
  - LAXATIVE ABUSE [None]
  - MELANOSIS COLI [None]
  - METASTASES TO LIVER [None]
  - VOMITING [None]
